FAERS Safety Report 7762209-9 (Version None)
Quarter: 2011Q3

REPORT INFORMATION
  Report Type: 
  Country: None (occurrence: None)
  Receive Date: 20110920
  Receipt Date: 20110919
  Transmission Date: 20111222
  Serious: Yes (Other)
  Sender: FDA-Public Use
  Company Number: US-PFIZER INC-2011205321

PATIENT
  Sex: Female

DRUGS (5)
  1. MAXALT [Suspect]
     Dosage: UNK
  2. VYTORIN [Suspect]
     Dosage: UNK
  3. CRESTOR [Suspect]
     Dosage: UNK
  4. LIPITOR [Suspect]
     Dosage: UNK
  5. ZOCOR [Suspect]
     Dosage: UNK

REACTIONS (6)
  - MIGRAINE [None]
  - FRACTURE [None]
  - PAIN [None]
  - FALL [None]
  - DRUG INEFFECTIVE [None]
  - HEAD DISCOMFORT [None]
